FAERS Safety Report 5074260-0 (Version None)
Quarter: 2006Q3

REPORT INFORMATION
  Report Type: 
  Country: None (occurrence: None)
  Receive Date: 20060803
  Receipt Date: 20060727
  Transmission Date: 20061208
  Serious: Yes (Hospitalization)
  Sender: FDA-Public Use
  Company Number: 2006BH012257

PATIENT
  Age: 70 Year
  Sex: Female

DRUGS (1)
  1. TAZICEF (CEFTAZIDIME SODIUM INJECTION) (CEFTAZIDIME) [Suspect]
     Indication: STATUS EPILEPTICUS
     Dosage: SEE IMAGE

REACTIONS (8)
  - ASTERIXIS [None]
  - DEPRESSED LEVEL OF CONSCIOUSNESS [None]
  - HAEMODIALYSIS [None]
  - MUTISM [None]
  - NYSTAGMUS [None]
  - OVERDOSE [None]
  - STATUS EPILEPTICUS [None]
  - WRONG TECHNIQUE IN DRUG USAGE PROCESS [None]
